FAERS Safety Report 5626553-3 (Version None)
Quarter: 2008Q1

REPORT INFORMATION
  Report Type: 
  Country: None (occurrence: None)
  Receive Date: 20080214
  Receipt Date: 20080131
  Transmission Date: 20080703
  Serious: Yes (Other)
  Sender: FDA-Public Use
  Company Number: GB-RANBAXY-2008RR-12860

PATIENT

DRUGS (7)
  1. ASPIRIN [Suspect]
  2. CARDICOR [Suspect]
  3. CLOPIDOGREL [Suspect]
     Route: 065
  4. PREGABALIN [Suspect]
     Indication: TRIGEMINAL NEURALGIA
     Dosage: 300 MG, BID
     Route: 065
  5. RAMIPRIL [Suspect]
  6. SIMVASTATIN [Suspect]
  7. PLAVIX [Suspect]

REACTIONS (3)
  - DRUG INEFFECTIVE [None]
  - DRUG INTERACTION [None]
  - MYOCARDIAL INFARCTION [None]
